FAERS Safety Report 4441586-0 (Version None)
Quarter: 2004Q3

REPORT INFORMATION
  Report Type: 
  Country: None (occurrence: None)
  Receive Date: 20040728
  Receipt Date: 20040319
  Transmission Date: 20050211
  Serious: Yes (Other)
  Sender: FDA-Public Use
  Company Number: USA040361534

PATIENT
  Age: 16 Year
  Sex: Female
  Weight: 59 kg

DRUGS (5)
  1. SYMBYAX-OLANZAPINE 6MG/FLUOXETINE 25MG(OLANZAPIN [Suspect]
     Indication: BIPOLAR I DISORDER
     Dosage: 1 DSG FORM/1 DAY
     Dates: start: 20040218, end: 20040225
  2. STRATTERA [Suspect]
  3. PROZAC [Suspect]
     Indication: BIPOLAR I DISORDER
     Dosage: 20 MG/1 DAY
     Dates: start: 20040225
  4. ORTHO TRI-CYCLEN [Concomitant]
  5. ATENOLOL [Concomitant]

REACTIONS (3)
  - DIZZINESS [None]
  - DRUG INEFFECTIVE [None]
  - LOSS OF CONSCIOUSNESS [None]
